FAERS Safety Report 7210429-4 (Version None)
Quarter: 2010Q4

REPORT INFORMATION
  Report Type: 
  Country: None (occurrence: None)
  Receive Date: 20101221
  Receipt Date: 20101208
  Transmission Date: 20110411
  Serious: Yes (Life-Threatening, Hospitalization)
  Sender: FDA-Public Use
  Company Number: 2009020741

PATIENT
  Sex: Female
  Weight: 58.9676 kg

DRUGS (12)
  1. VIVAGLOBIN [Suspect]
     Indication: HYPOGAMMAGLOBULINAEMIA
     Dosage: (5.28 G 1X/WEEK, 5.28 GRAMS (33 ML) WEEKLY SUBCUTANEOUS)
     Route: 058
     Dates: start: 20071001, end: 20100511
  2. VIVAGLOBIN [Suspect]
  3. VIVAGLOBIN [Suspect]
  4. SINGULAIR [Concomitant]
  5. TOPAMAX [Concomitant]
  6. VITAMIN B12 [Concomitant]
  7. ZYRTEC [Concomitant]
  8. ALEVE [Concomitant]
  9. IMITREX [Concomitant]
  10. ALBUTEROL [Concomitant]
  11. IBUPROFEN (OTC) (IBUPROFEN) [Concomitant]
  12. AUGMENTIN (AUGMENTIN /00756801/) [Concomitant]

REACTIONS (6)
  - ASTHENIA [None]
  - CEREBROVASCULAR ACCIDENT [None]
  - HEADACHE [None]
  - HYPOAESTHESIA [None]
  - INTRACRANIAL VENOUS SINUS THROMBOSIS [None]
  - URTICARIA [None]
